FAERS Safety Report 7603946-6 (Version None)
Quarter: 2011Q3

REPORT INFORMATION
  Report Type: 
  Country: None (occurrence: None)
  Receive Date: 20110712
  Receipt Date: 20110704
  Transmission Date: 20111222
  Serious: Yes (Life-Threatening, Other)
  Sender: FDA-Public Use
  Company Number: DE-ROCHE-783330

PATIENT
  Sex: Male

DRUGS (5)
  1. ROFERON-A [Suspect]
     Indication: MALIGNANT MELANOMA
     Route: 058
     Dates: start: 20100505, end: 20110615
  2. RAMIPRIL [Concomitant]
     Route: 048
  3. NYSTATIN [Concomitant]
     Dosage: DOSE FORM ONE HUB
     Route: 048
  4. AMLODIPINE [Concomitant]
     Route: 048
  5. METOPROLOL TARTRATE [Concomitant]
     Route: 048

REACTIONS (3)
  - PORTAL VEIN THROMBOSIS [None]
  - DEEP VEIN THROMBOSIS [None]
  - THROMBOSIS MESENTERIC VESSEL [None]
